FAERS Safety Report 24386936 (Version 1)
Quarter: 2024Q4

REPORT INFORMATION
  Report Type: Spontaneous
  Country: GB (occurrence: GB)
  Receive Date: 20241002
  Receipt Date: 20241002
  Transmission Date: 20250115
  Serious: Yes (Other)
  Sender: ROCHE
  Company Number: None

PATIENT

DRUGS (1)
  1. TOCILIZUMAB [Suspect]
     Active Substance: TOCILIZUMAB
     Indication: Rheumatoid arthritis
     Route: 065
     Dates: start: 20240401, end: 20240701

REACTIONS (2)
  - Mouth ulceration [Recovering/Resolving]
  - Anal ulcer [Recovering/Resolving]

NARRATIVE: CASE EVENT DATE: 20240501
